FAERS Safety Report 9271824 (Version 1)
Quarter: 2013Q2

REPORT INFORMATION
  Report Type: Other
  Country: US (occurrence: US)
  Receive Date: 20130506
  Receipt Date: 20130506
  Transmission Date: 20140414
  Serious: Yes (Death, Hospitalization)
  Sender: FDA-Public Use
  Company Number: US-SHIRE-ALL1-2013-02879

PATIENT
  Sex: Female

DRUGS (1)
  1. LIALDA [Suspect]
     Indication: COLITIS ULCERATIVE
     Dosage: 4.8 G (FOUR 1.2 G), 1X/DAY:QD
     Route: 048
     Dates: start: 2011

REACTIONS (2)
  - Death [Fatal]
  - Hospitalisation [Unknown]
